FAERS Safety Report 23088601 (Version 5)
Quarter: 2024Q3

REPORT INFORMATION
  Report Type: Report from Study
  Country: MX (occurrence: MX)
  Receive Date: 20231020
  Receipt Date: 20240910
  Transmission Date: 20241017
  Serious: Yes (Life-Threatening, Other)
  Sender: NOVARTIS
  Company Number: MX-002147023-NVSC2023MX223510

PATIENT
  Age: 42 Year
  Sex: Female
  Weight: 69 kg

DRUGS (7)
  1. KISQALI [Suspect]
     Active Substance: RIBOCICLIB
     Indication: Breast cancer
     Dosage: UNK
     Route: 048
     Dates: start: 20230424
  2. KISQALI [Suspect]
     Active Substance: RIBOCICLIB
     Indication: Chronic myeloid leukaemia
     Dosage: 600 MG (3X200 MG), QD, (ONCE A DAY FOR 21 DAYS AND THEN RESTS 7 DAYS), 3 DOSAGE FORM
     Route: 048
     Dates: start: 202304
  3. KISQALI [Suspect]
     Active Substance: RIBOCICLIB
     Indication: Metastases to liver
     Dosage: 3 DOSAGE FORM, QD
     Route: 048
  4. LETROZOLE [Suspect]
     Active Substance: LETROZOLE
     Indication: Breast cancer
     Dosage: UNK, QD
     Route: 065
  5. LETROZOLE [Suspect]
     Active Substance: LETROZOLE
     Indication: Metastases to liver
  6. AMPICILLIN [Suspect]
     Active Substance: AMPICILLIN
     Indication: Toothache
     Dosage: UNK
     Route: 065
  7. LETROZOLE [Concomitant]
     Active Substance: LETROZOLE
     Indication: Breast cancer
     Dosage: 1 DOSAGE FORM, QD
     Route: 048
     Dates: start: 202304

REACTIONS (60)
  - Feeling abnormal [Unknown]
  - Body mass index increased [Unknown]
  - Metastasis [Recovering/Resolving]
  - Lymphadenopathy [Recovering/Resolving]
  - Dermatitis [Not Recovered/Not Resolved]
  - Photosensitivity reaction [Not Recovered/Not Resolved]
  - Malaise [Unknown]
  - Food craving [Unknown]
  - Vertigo [Recovering/Resolving]
  - Insomnia [Unknown]
  - Ear discomfort [Unknown]
  - Hypertension [Recovering/Resolving]
  - Clubbing [Recovering/Resolving]
  - Fear [Recovering/Resolving]
  - Headache [Recovered/Resolved]
  - Abdominal pain [Not Recovered/Not Resolved]
  - Haemoglobin decreased [Recovered/Resolved]
  - Platelet count decreased [Recovered/Resolved]
  - Dyspnoea [Not Recovered/Not Resolved]
  - Pruritus [Not Recovered/Not Resolved]
  - Inflammation [Not Recovered/Not Resolved]
  - Weight decreased [Recovered/Resolved]
  - Hot flush [Recovering/Resolving]
  - Pain [Unknown]
  - Hepatic mass [Unknown]
  - Limb discomfort [Recovered/Resolved]
  - Increased appetite [Unknown]
  - Mood altered [Not Recovered/Not Resolved]
  - Weight fluctuation [Unknown]
  - Tooth impacted [Unknown]
  - Stress [Recovering/Resolving]
  - Toothache [Recovered/Resolved]
  - Bone disorder [Recovered/Resolved]
  - Dysstasia [Unknown]
  - Hypoaesthesia [Recovered/Resolved]
  - Anxiety [Recovered/Resolved]
  - Blood glucose increased [Unknown]
  - Gingival pain [Recovered/Resolved]
  - Discomfort [Unknown]
  - Constipation [Recovered/Resolved]
  - Asthenia [Unknown]
  - Hypersensitivity [Unknown]
  - Infection [Unknown]
  - Urticaria [Recovered/Resolved]
  - Acne [Unknown]
  - Dizziness [Recovered/Resolved]
  - Suffocation feeling [Unknown]
  - Ear inflammation [Recovering/Resolving]
  - Trismus [Unknown]
  - Facial pain [Recovering/Resolving]
  - Bruxism [Recovered/Resolved]
  - Panic attack [Recovering/Resolving]
  - Hyperhidrosis [Unknown]
  - Neck pain [Recovered/Resolved]
  - Pain in jaw [Recovering/Resolving]
  - Headache [Recovering/Resolving]
  - Gastrointestinal inflammation [Not Recovered/Not Resolved]
  - Inflammation [Recovered/Resolved]
  - Somnolence [Recovering/Resolving]
  - Off label use [Not Recovered/Not Resolved]

NARRATIVE: CASE EVENT DATE: 20230401
